FAERS Safety Report 8002710-6 (Version None)
Quarter: 2011Q4

REPORT INFORMATION
  Report Type: 
  Country: None (occurrence: None)
  Receive Date: 20111222
  Receipt Date: 20111219
  Transmission Date: 20120403
  Serious: Yes (Disabling)
  Sender: FDA-Public Use
  Company Number: US-MERCK-1109USA02457

PATIENT
  Age: 42 Year
  Sex: Male

DRUGS (3)
  1. PROPECIA [Suspect]
     Indication: ALOPECIA
     Route: 048
     Dates: start: 20040101, end: 20091001
  2. PROSCAR [Suspect]
     Indication: ALOPECIA
     Route: 048
     Dates: start: 20040101, end: 20091001
  3. PROSCAR [Suspect]
     Route: 048
     Dates: start: 20040101, end: 20091001

REACTIONS (8)
  - ANXIETY [None]
  - COGNITIVE DISORDER [None]
  - DEPRESSION [None]
  - TESTICULAR PAIN [None]
  - GENITAL HYPOAESTHESIA [None]
  - ERECTILE DYSFUNCTION [None]
  - WRONG TECHNIQUE IN DRUG USAGE PROCESS [None]
  - LOSS OF LIBIDO [None]
